FAERS Safety Report 9057639 (Version 1)
Quarter: 2013Q1

REPORT INFORMATION
  Report Type: Spontaneous
  Country: CH (occurrence: CH)
  Receive Date: 20130204
  Receipt Date: 20130204
  Transmission Date: 20140127
  Serious: Yes (Other)
  Sender: FDA-Public Use
  Company Number: CH-PFIZER INC-2013015573

PATIENT
  Age: 46 Year
  Sex: Female

DRUGS (1)
  1. SOMAVERT [Suspect]
     Indication: ACROMEGALY
     Dosage: 10 MG PER DAY OR 20 MG PER DAY
     Dates: start: 201202, end: 201204

REACTIONS (1)
  - Lipodystrophy acquired [Not Recovered/Not Resolved]
